FAERS Safety Report 25116657 (Version 1)
Quarter: 2025Q1

REPORT INFORMATION
  Report Type: Report from Study
  Country: US (occurrence: US)
  Receive Date: 20250325
  Receipt Date: 20250325
  Transmission Date: 20250409
  Serious: Yes (Other)
  Sender: UCB
  Company Number: US-UCBSA-2025011906

PATIENT
  Age: 22 Year
  Sex: Male
  Weight: 63 kg

DRUGS (2)
  1. FINTEPLA [Suspect]
     Active Substance: FENFLURAMINE
     Indication: Lennox-Gastaut syndrome
     Dosage: 2.9 MILLILITER, 2X/DAY (BID)
     Dates: start: 20241005
  2. FINTEPLA [Suspect]
     Active Substance: FENFLURAMINE
     Indication: Seizure

REACTIONS (4)
  - Tricuspid valve incompetence [Not Recovered/Not Resolved]
  - Parachute mitral valve [Not Recovered/Not Resolved]
  - Weight gain poor [Not Recovered/Not Resolved]
  - Drug ineffective [Unknown]

NARRATIVE: CASE EVENT DATE: 20250313
